FAERS Safety Report 7580063-5 (Version None)
Quarter: 2011Q2

REPORT INFORMATION
  Report Type: 
  Country: None (occurrence: None)
  Receive Date: 20110622
  Receipt Date: 20110607
  Transmission Date: 20111010
  Serious: Yes (Death, Hospitalization)
  Sender: FDA-Public Use
  Company Number: TCI2011A03429

PATIENT
  Age: 82 Year
  Sex: Male

DRUGS (13)
  1. SELTOUCH (FELBINAC) [Concomitant]
  2. MYSLEE (ZOLPIDEM TARTRATE) [Concomitant]
  3. TAMSULOSIN HCL [Concomitant]
  4. NOVORAPID 30 MIX (INSULIN ASPART) [Concomitant]
  5. TAKEPRON OD TABLETS 30 (LANSOPRAZOLE) [Concomitant]
  6. ANTIHYPERTENSIVES [Concomitant]
  7. ASPIRIN [Concomitant]
  8. ANGIOTENSIN II ANTAGONISTS [Concomitant]
  9. HMG COA REDUCTASE INHIBITORS [Concomitant]
  10. CALCIUM CHANNEL BLOCKERS [Concomitant]
  11. PURSENNID (SENNA ALEXANDRINA LEAF) [Concomitant]
  12. ACTOS [Suspect]
     Indication: TYPE 2 DIABETES MELLITUS
     Dosage: 15 MG (15 MG, 1 D) PER ORAL
     Route: 048
     Dates: start: 20100213, end: 20101109
  13. DIURETICS [Concomitant]

REACTIONS (3)
  - URINARY TRACT INFECTION [None]
  - OEDEMA PERIPHERAL [None]
  - RECTAL CANCER [None]
